FAERS Safety Report 16720982 (Version 1)
Quarter: 2019Q3

REPORT INFORMATION
  Report Type: Report from Study
  Country: BE (occurrence: BE)
  Receive Date: 20190820
  Receipt Date: 20190820
  Transmission Date: 20191005
  Serious: Yes (Death)
  Sender: FDA-Public Use
  Company Number: BE-AMGEN-BELCT2019131952

PATIENT
  Age: 21 Year
  Sex: Male

DRUGS (1)
  1. ETANERCEPT [Suspect]
     Active Substance: ETANERCEPT
     Indication: TRANSPLANT
     Dosage: UNK
     Route: 065

REACTIONS (1)
  - Death [Fatal]
